FAERS Safety Report 11852526 (Version 2)
Quarter: 2017Q1

REPORT INFORMATION
  Report Type: Spontaneous
  Country: US (occurrence: US)
  Receive Date: 20151218
  Receipt Date: 20170313
  Transmission Date: 20170428
  Serious: Yes (Other)
  Sender: FDA-Public Use
  Company Number: US-ELI_LILLY_AND_COMPANY-US201512005791

PATIENT
  Age: 55 Year
  Sex: Female

DRUGS (34)
  1. ULTRAM [Suspect]
     Active Substance: TRAMADOL HYDROCHLORIDE
     Dosage: 50 MG, PRN
     Route: 048
     Dates: end: 201504
  2. ZOLPIDEM [Concomitant]
     Active Substance: ZOLPIDEM\ZOLPIDEM TARTRATE
     Indication: SLEEP DISORDER
     Dosage: 5 MG, PRN
     Route: 048
  3. PIROXICAM. [Concomitant]
     Active Substance: PIROXICAM
     Dosage: 20 MG, QD
     Route: 048
  4. CYMBALTA [Suspect]
     Active Substance: DULOXETINE HYDROCHLORIDE
     Dosage: 60 MG, UNKNOWN
     Route: 065
  5. ACETASOL HC [Concomitant]
     Active Substance: ACETIC ACID\HYDROCORTISONE
     Dosage: 1 %, PRN
     Route: 065
  6. COENZYME Q10 [Concomitant]
     Active Substance: UBIDECARENONE
     Dosage: 100 MG, QD
     Route: 048
  7. CLINORIL [Concomitant]
     Active Substance: SULINDAC
     Indication: ARTHRALGIA
     Dosage: 200 MG, PRN
  8. CYMBALTA [Suspect]
     Active Substance: DULOXETINE HYDROCHLORIDE
     Dosage: 60 MG, QD
     Route: 065
  9. CYMBALTA [Suspect]
     Active Substance: DULOXETINE HYDROCHLORIDE
     Dosage: 30 MG, UNKNOWN
     Route: 065
     Dates: end: 201504
  10. PRILOSEC [Concomitant]
     Active Substance: OMEPRAZOLE MAGNESIUM
     Indication: GASTRITIS PROPHYLAXIS
     Dosage: 20 MG, QD
     Route: 048
  11. LEVOTHYROXINE SODIUM. [Concomitant]
     Active Substance: LEVOTHYROXINE SODIUM
     Dosage: 50 UG, QD
     Route: 048
  12. LISINOPRIL. [Concomitant]
     Active Substance: LISINOPRIL
     Dosage: 0.5 DF, BID
     Route: 065
  13. CLOBETASOL PROPIONATE. [Concomitant]
     Active Substance: CLOBETASOL PROPIONATE
     Indication: GENITAL TRACT INFLAMMATION
     Dosage: UNK, PRN
     Route: 065
  14. CALCIUM CITRATE + D [Concomitant]
     Dosage: 1 DF, QID
     Route: 048
  15. SYSTANE (HYPROMELLOSE 2910 (4000 MPA.S)) [Concomitant]
     Active Substance: HYPROMELLOSE 2910 (4000 MPA.S)
     Dosage: UNK, UNKNOWN
     Route: 047
  16. CYMBALTA [Suspect]
     Active Substance: DULOXETINE HYDROCHLORIDE
     Dosage: 30 MG, QD
     Route: 065
     Dates: start: 20150415
  17. CYMBALTA [Suspect]
     Active Substance: DULOXETINE HYDROCHLORIDE
     Dosage: 60 MG, QD
     Route: 065
     Dates: start: 20150421
  18. CYCLOBENZAPRINE HCL [Concomitant]
     Active Substance: CYCLOBENZAPRINE HYDROCHLORIDE
     Dosage: 10 MG, TID
     Route: 048
  19. PRAVASTATIN. [Concomitant]
     Active Substance: PRAVASTATIN
     Dosage: 40 MG, QD
     Route: 048
  20. MENOSTAR [Concomitant]
     Active Substance: ESTRADIOL
     Dosage: UNK, UNKNOWN
     Route: 065
  21. ASPIRIN                            /00002701/ [Concomitant]
     Active Substance: ASPIRIN
     Dosage: 81 MG, QD
     Route: 048
  22. SALAGEN [Concomitant]
     Active Substance: PILOCARPINE HYDROCHLORIDE
     Dosage: 5 MG, TID
     Route: 065
  23. RESTASIS [Concomitant]
     Active Substance: CYCLOSPORINE
     Dosage: 0.05 %, UNKNOWN
     Route: 047
  24. ULTRAM [Suspect]
     Active Substance: TRAMADOL HYDROCHLORIDE
     Dosage: 50 MG, UNKNOWN
     Route: 048
  25. ULTRAM [Suspect]
     Active Substance: TRAMADOL HYDROCHLORIDE
     Dosage: 50 MG, PRN
     Route: 048
     Dates: start: 20150415
  26. ACETAMINOPHEN AND CODEINE [Concomitant]
     Active Substance: ACETAMINOPHEN\CODEINE PHOSPHATE
     Indication: PAIN
     Dosage: 1 DF, PRN
     Route: 065
  27. FOLIC ACID. [Concomitant]
     Active Substance: FOLIC ACID
     Dosage: 400 MG, QD
     Route: 048
  28. MIRAPEX [Concomitant]
     Active Substance: PRAMIPEXOLE DIHYDROCHLORIDE
     Dosage: 1.5 MG, BID
     Route: 048
  29. ULTRAM [Suspect]
     Active Substance: TRAMADOL HYDROCHLORIDE
     Indication: PAIN
     Dosage: UNK UNK, PRN
     Route: 048
  30. B50 [Concomitant]
     Dosage: 1 DF, QD
     Route: 048
  31. CYMBALTA [Suspect]
     Active Substance: DULOXETINE HYDROCHLORIDE
     Indication: PRODUCT USED FOR UNKNOWN INDICATION
     Dosage: UNK, UNKNOWN
     Route: 065
  32. FEXOFENADINE [Concomitant]
     Active Substance: FEXOFENADINE\FEXOFENADINE HYDROCHLORIDE
     Indication: NASAL CONGESTION
     Dosage: 180 MG, PRN
     Route: 065
  33. CENTRUM SILVER                     /02363801/ [Concomitant]
     Active Substance: MINERALS\VITAMINS
     Dosage: 1 DF, QD
     Route: 048
  34. PREVIDENT 5000 PLUS [Concomitant]
     Dosage: UNK, UNKNOWN
     Route: 061

REACTIONS (44)
  - Agitation [Unknown]
  - Chills [Unknown]
  - Abdominal pain upper [Unknown]
  - Suicidal ideation [Unknown]
  - Headache [Unknown]
  - Nausea [Unknown]
  - Tinnitus [Unknown]
  - Balance disorder [Unknown]
  - Paraesthesia [Unknown]
  - Anxiety [Unknown]
  - Dyspepsia [Unknown]
  - Dysphoria [Unknown]
  - Gastritis [Unknown]
  - Nightmare [Unknown]
  - Dizziness [Unknown]
  - Fatigue [Unknown]
  - Constipation [Unknown]
  - Depression [Unknown]
  - Appetite disorder [Unknown]
  - Drug withdrawal syndrome [Unknown]
  - Tremor [Unknown]
  - Affect lability [Unknown]
  - Diarrhoea [Unknown]
  - Paraesthesia [Unknown]
  - Hyperhidrosis [Unknown]
  - Fall [Unknown]
  - Coordination abnormal [Unknown]
  - Fatigue [Unknown]
  - Flatulence [Unknown]
  - Disturbance in attention [Unknown]
  - Abdominal pain [Unknown]
  - Confusional state [Unknown]
  - Tremor [Unknown]
  - Sensory disturbance [Unknown]
  - Lethargy [Unknown]
  - Vomiting [Unknown]
  - Insomnia [Unknown]
  - Abdominal distension [Unknown]
  - Irritability [Unknown]
  - Seizure [Unknown]
  - Insomnia [Unknown]
  - Vertigo [Unknown]
  - Anxiety [Unknown]
  - Injury [Unknown]

NARRATIVE: CASE EVENT DATE: 201504
